FAERS Safety Report 8868939 (Version 1)
Quarter: 2012Q4

REPORT INFORMATION
  Report Type: Spontaneous
  Country: GB (occurrence: None)
  Receive Date: 20121022
  Receipt Date: 20121022
  Transmission Date: 20130627
  Serious: Yes (Hospitalization)
  Sender: FDA-Public Use
  Company Number: 140367

PATIENT
  Age: 71 Year
  Sex: Female

DRUGS (1)
  1. DOBUTAMINE [Suspect]
     Indication: EXERTIONAL DYSPNEA

REACTIONS (2)
  - Stress cardiomyopathy [None]
  - Left ventricle outflow tract obstruction [None]
